FAERS Safety Report 8809703 (Version 1)
Quarter: 2012Q4

REPORT INFORMATION
  Report Type: 
  Country: US (occurrence: US)
  Receive Date: 20120926
  Receipt Date: 20120926
  Transmission Date: 20130627
  Serious: Yes (Other)
  Sender: FDA-Public Use
  Company Number: US-ROCHE-1128750

PATIENT
  Sex: Female
  Weight: 99.09 kg

DRUGS (10)
  1. AVASTIN [Suspect]
     Indication: BREAST CANCER FEMALE
     Route: 065
  2. AVASTIN [Suspect]
     Route: 065
     Dates: start: 20051227
  3. AVASTIN [Suspect]
     Route: 065
     Dates: start: 20060110
  4. AVASTIN [Suspect]
     Route: 065
     Dates: start: 20060124
  5. XELODA [Suspect]
     Indication: PRODUCT USED FOR UNKNOWN INDICATION
     Route: 065
  6. TAMOXIFEN [Concomitant]
  7. ARIMIDEX [Concomitant]
  8. FEMARA [Concomitant]
  9. ARANESP [Concomitant]
  10. AREDIA [Concomitant]

REACTIONS (4)
  - Tumour marker increased [Unknown]
  - Anaemia [Unknown]
  - Pleural effusion [Unknown]
  - Metastases to bone [Unknown]
